FAERS Safety Report 4995383-8 (Version None)
Quarter: 2006Q2

REPORT INFORMATION
  Report Type: 
  Country: None (occurrence: None)
  Receive Date: 20060503
  Receipt Date: 20060421
  Transmission Date: 20061013
  Serious: Yes (Life-Threatening)
  Sender: FDA-Public Use
  Company Number: 2005S1011181

PATIENT
  Age: 45 Year
  Sex: Female
  Weight: 63.5036 kg

DRUGS (11)
  1. CLONAZEPAM [Suspect]
     Indication: ANXIETY
     Dosage: 0.5 MG;TID;ORAL
     Route: 048
     Dates: start: 20051113, end: 20051116
  2. CLONAZEPAM [Suspect]
     Indication: LARYNGOSPASM
     Dosage: 0.5 MG;TID;ORAL
     Route: 048
     Dates: start: 20051113, end: 20051116
  3. ALENDRONATE SODIUM [Concomitant]
  4. TRAMADOL HCL [Concomitant]
  5. PARACETAMOL/DEXTROPROPOXYPHENE NAPSILATE [Concomitant]
  6. AMITRIPTYLINE HCL [Concomitant]
  7. CETIRIZINE [Concomitant]
  8. RANITIDINE [Concomitant]
  9. MONTELUKAST [Concomitant]
  10. PHENYLEPHRINE HYDROCHLORIDE/GUAIFENESIN/PHENYLPROPANOLAMINE HYDROCHLOR [Concomitant]
  11. LANSOPRAZOLE [Concomitant]

REACTIONS (6)
  - ANAPHYLACTIC REACTION [None]
  - ANXIETY [None]
  - DYSPNOEA [None]
  - FLUSHING [None]
  - PRURITUS [None]
  - RASH [None]
